FAERS Safety Report 20435544 (Version 1)
Quarter: 2022Q1

REPORT INFORMATION
  Report Type: Spontaneous
  Country: AR (occurrence: AR)
  Receive Date: 20220206
  Receipt Date: 20220206
  Transmission Date: 20220423
  Serious: Yes (Other)
  Sender: FDA-Public Use
  Company Number: AR-PFIZER INC-202101168937

PATIENT
  Age: 61 Year
  Sex: Female

DRUGS (1)
  1. ENBREL [Suspect]
     Active Substance: ETANERCEPT
     Indication: Product used for unknown indication
     Dosage: UNSPECIFIED
     Route: 065

REACTIONS (4)
  - Limb injury [Unknown]
  - Hand deformity [Unknown]
  - General physical health deterioration [Unknown]
  - Foot deformity [Unknown]
